FAERS Safety Report 5546432-X (Version None)
Quarter: 2007Q4

REPORT INFORMATION
  Report Type: 
  Country: None (occurrence: None)
  Receive Date: 20071206
  Receipt Date: 20071206
  Transmission Date: 20080405
  Serious: Yes (Disabling)
  Sender: FDA-Public Use
  Company Number: None

PATIENT
  Age: 65 Year
  Sex: Female
  Weight: 91.6266 kg

DRUGS (1)
  1. INFLIXIMAB 5MG/KG CENTOCOR [Suspect]
     Indication: RHEUMATOID ARTHRITIS
     Dosage: 460MG Q 2 MONTHS IV DRIP
     Route: 041
     Dates: start: 20060501, end: 20070723

REACTIONS (5)
  - DIZZINESS [None]
  - HEADACHE [None]
  - MENINGIOMA [None]
  - NEOPLASM MALIGNANT [None]
  - PITUITARY TUMOUR BENIGN [None]
